FAERS Safety Report 19687036 (Version 1)
Quarter: 2021Q3

REPORT INFORMATION
  Report Type: Spontaneous
  Country: DE (occurrence: DE)
  Receive Date: 20210811
  Receipt Date: 20210811
  Transmission Date: 20211014
  Serious: Yes (Other)
  Sender: FDA-Public Use
  Company Number: DE-PFIZER INC-202100966757

PATIENT
  Age: 71 Year
  Sex: Male

DRUGS (6)
  1. VENLAFAXINE HCL [Suspect]
     Active Substance: VENLAFAXINE HYDROCHLORIDE
     Dosage: 37.5?50 MG
  2. LAMOTRIGINE. [Suspect]
     Active Substance: LAMOTRIGINE
     Indication: PROPHYLAXIS
     Dosage: UNK
  3. ELONTRIL [Suspect]
     Active Substance: BUPROPION HYDROCHLORIDE
     Indication: DEPRESSION
     Dosage: 150 MG
  4. SUMATRIPTAN SUCCINATE. [Suspect]
     Active Substance: SUMATRIPTAN SUCCINATE
     Dosage: 50 MG
  5. ASPIRIN. [Suspect]
     Active Substance: ASPIRIN
     Indication: PROPHYLAXIS
     Dosage: UNK
  6. SYNEUDON [Suspect]
     Active Substance: AMITRIPTYLINE HYDROCHLORIDE
     Dosage: 50 MG

REACTIONS (7)
  - Precancerous skin lesion [Unknown]
  - Actinic keratosis [Unknown]
  - Skin injury [Unknown]
  - Prurigo [Unknown]
  - Eczema [Unknown]
  - Dermatitis allergic [Unknown]
  - Skin cancer [Unknown]
